FAERS Safety Report 7015223-5 (Version None)
Quarter: 2010Q3

REPORT INFORMATION
  Report Type: 
  Country: None (occurrence: None)
  Receive Date: 20100927
  Receipt Date: 20100917
  Transmission Date: 20110219
  Serious: Yes (Hospitalization)
  Sender: FDA-Public Use
  Company Number: PHHY2010US52853

PATIENT
  Sex: Female
  Weight: 70.295 kg

DRUGS (1)
  1. GLEEVEC [Suspect]
     Indication: CHRONIC MYELOID LEUKAEMIA
     Dosage: 600 MG DAILY
     Route: 048
     Dates: end: 20100802

REACTIONS (2)
  - INTERVERTEBRAL DISC PROTRUSION [None]
  - TREATMENT NONCOMPLIANCE [None]
